FAERS Safety Report 21294640 (Version 7)
Quarter: 2023Q2

REPORT INFORMATION
  Report Type: Report from Study
  Country: GB (occurrence: GB)
  Receive Date: 20220905
  Receipt Date: 20230523
  Transmission Date: 20230721
  Serious: Yes (Death, Life-Threatening)
  Sender: FDA-Public Use
  Company Number: GB-JAZZ-2022-GB-028318

PATIENT
  Age: 65 Year
  Sex: Male

DRUGS (2)
  1. CYTARABINE\DAUNORUBICIN [Suspect]
     Active Substance: CYTARABINE\DAUNORUBICIN
     Indication: Acute myeloid leukaemia
     Dosage: 100 UNITS/M2
     Route: 042
     Dates: start: 20220601
  2. CYTARABINE\DAUNORUBICIN [Suspect]
     Active Substance: CYTARABINE\DAUNORUBICIN
     Dosage: 100 UNITS/M2
     Route: 042
     Dates: start: 20220809, end: 20220811

REACTIONS (2)
  - Necrotising fasciitis [Fatal]
  - Alanine aminotransferase increased [Recovered/Resolved]

NARRATIVE: CASE EVENT DATE: 20220827
